FAERS Safety Report 4889380-0 (Version None)
Quarter: 2006Q1

REPORT INFORMATION
  Report Type: 
  Country: None (occurrence: None)
  Receive Date: 20060120
  Receipt Date: 20060109
  Transmission Date: 20060701
  Serious: Yes (Hospitalization, Other)
  Sender: FDA-Public Use
  Company Number: 2005168783

PATIENT
  Age: 54 Year
  Sex: Female

DRUGS (6)
  1. SERTRALINE [Suspect]
     Indication: PERSECUTORY DELUSION
  2. HALOPERIDOL (HALOPERIDOL0 [Suspect]
     Indication: TREMOR
  3. RISPERIDONE [Suspect]
     Indication: MAJOR DEPRESSION
  4. OLANZAPINE [Suspect]
     Indication: MAJOR DEPRESSION
  5. BENZATROPINE (BENZATROPINE) [Suspect]
     Indication: TREMOR
  6. ARIPIPRAZOLE (ARIPIPRAZOLE) [Suspect]
     Indication: ILL-DEFINED DISORDER

REACTIONS (9)
  - AGITATION [None]
  - EAR PAIN [None]
  - FLASHBACK [None]
  - JOINT STIFFNESS [None]
  - NIGHTMARE [None]
  - PERSECUTORY DELUSION [None]
  - SUICIDAL IDEATION [None]
  - TARDIVE DYSKINESIA [None]
  - TREMOR [None]
